FAERS Safety Report 19471127 (Version 8)
Quarter: 2022Q2

REPORT INFORMATION
  Report Type: Report from Study
  Country: US (occurrence: US)
  Receive Date: 20210629
  Receipt Date: 20220610
  Transmission Date: 20220721
  Serious: No
  Sender: FDA-Public Use
  Company Number: NVSC2021US139089

PATIENT
  Sex: Male

DRUGS (2)
  1. ENTRESTO [Suspect]
     Active Substance: SACUBITRIL\VALSARTAN
     Indication: Myocardial infarction
     Dosage: 1 DOSAGE FORM (24/26 MG), BID
     Route: 048
  2. ENTRESTO [Suspect]
     Active Substance: SACUBITRIL\VALSARTAN
     Dosage: UNK
     Route: 065

REACTIONS (10)
  - Oedema peripheral [Recovering/Resolving]
  - Patellofemoral pain syndrome [Recovering/Resolving]
  - Stress [Unknown]
  - Arthropathy [Unknown]
  - Cough [Unknown]
  - Pain [Unknown]
  - Fluid retention [Unknown]
  - Gait disturbance [Unknown]
  - Product dose omission issue [Unknown]
  - Product use in unapproved indication [Unknown]
